FAERS Safety Report 17727803 (Version 1)
Quarter: 2020Q2

REPORT INFORMATION
  Report Type: Spontaneous
  Country: US (occurrence: US)
  Receive Date: 20200429
  Receipt Date: 20200429
  Transmission Date: 20200714
  Serious: No
  Sender: FDA-Public Use
  Company Number: None

PATIENT
  Age: 61 Year
  Sex: Male
  Weight: 74 kg

DRUGS (1)
  1. VABOMERE [Suspect]
     Active Substance: MEROPENEM\VABORBACTAM
     Indication: PNEUMONIA
     Route: 042
     Dates: start: 20200331, end: 20200331

REACTIONS (2)
  - Rash erythematous [None]
  - Injection site pain [None]

NARRATIVE: CASE EVENT DATE: 20200331
